FAERS Safety Report 8301046-3 (Version None)
Quarter: 2012Q2

REPORT INFORMATION
  Report Type: 
  Country: None (occurrence: None)
  Receive Date: 20120420
  Receipt Date: 20120412
  Transmission Date: 20120825
  Serious: Yes (Hospitalization, Other)
  Sender: FDA-Public Use
  Company Number: US-BAYER-2012-021052

PATIENT
  Age: 59 Year
  Sex: Male

DRUGS (5)
  1. COUMADIN [Concomitant]
     Dosage: UNK
     Dates: start: 20110301
  2. NORVASC [Concomitant]
     Dosage: UNK
  3. SORAFENIB (RAF KINASE INHIBITOR) [Suspect]
     Indication: RENAL CELL CARCINOMA
     Dosage: 400 MG, BID
     Dates: start: 20120215, end: 20120226
  4. LISINOPRIL [Concomitant]
     Dosage: UNK
  5. SORAFENIB (RAF KINASE INHIBITOR) [Suspect]
     Dosage: 200 MG, BID
     Dates: start: 20120315, end: 20120323

REACTIONS (9)
  - DIZZINESS [None]
  - COUGH [None]
  - BLOOD PRESSURE DECREASED [None]
  - BLOOD PRESSURE INCREASED [None]
  - NAUSEA [None]
  - VIRAL SINUSITIS [None]
  - EPISTAXIS [None]
  - FLUSHING [None]
  - PYREXIA [None]
